FAERS Safety Report 4938965-1 (Version None)
Quarter: 2006Q1

REPORT INFORMATION
  Report Type: 
  Country: None (occurrence: None)
  Receive Date: 20060309
  Receipt Date: 20051114
  Transmission Date: 20060701
  Serious: Yes (Hospitalization, Other)
  Sender: FDA-Public Use
  Company Number: US-MERCK-0511USA02621

PATIENT
  Sex: Female

DRUGS (1)
  1. VIOXX [Suspect]
     Route: 065
     Dates: start: 19990801, end: 20021007

REACTIONS (11)
  - ATRIAL FIBRILLATION [None]
  - CARDIAC DISORDER [None]
  - CEREBROVASCULAR ACCIDENT [None]
  - CORONARY ARTERY DISEASE [None]
  - DIABETES MELLITUS [None]
  - DIZZINESS [None]
  - DRUG HYPERSENSITIVITY [None]
  - GROIN PAIN [None]
  - OSTEOARTHRITIS [None]
  - SINUS BRADYCARDIA [None]
  - VERTIGO [None]
